FAERS Safety Report 17083099 (Version 1)
Quarter: 2019Q4

REPORT INFORMATION
  Report Type: Spontaneous
  Country: US (occurrence: US)
  Receive Date: 20191127
  Receipt Date: 20191127
  Transmission Date: 20200122
  Serious: Yes (Other)
  Sender: FDA-Public Use
  Company Number: US-BAYER-2019-213774

PATIENT
  Age: 44 Year
  Sex: Female
  Weight: 81.19 kg

DRUGS (2)
  1. CIPRO [Suspect]
     Active Substance: CIPROFLOXACIN HYDROCHLORIDE
     Dosage: 500 MG, QD
     Route: 048
     Dates: start: 20191021, end: 20191023
  2. CIPRO [Suspect]
     Active Substance: CIPROFLOXACIN HYDROCHLORIDE
     Indication: URINARY TRACT INFECTION
     Dosage: UNK UNK, QD
     Route: 042
     Dates: start: 20191020, end: 20191020

REACTIONS (9)
  - Pain [Not Recovered/Not Resolved]
  - Neuropathy peripheral [Not Recovered/Not Resolved]
  - Apraxia [Recovered/Resolved]
  - Intracranial pressure increased [Recovered/Resolved with Sequelae]
  - Muscular weakness [None]
  - Peripheral swelling [Recovered/Resolved with Sequelae]
  - Muscular weakness [None]
  - Burning sensation [Not Recovered/Not Resolved]
  - Confusional state [Recovering/Resolving]

NARRATIVE: CASE EVENT DATE: 20191021
